FAERS Safety Report 10838947 (Version 1)
Quarter: 2015Q1

REPORT INFORMATION
  Report Type: Spontaneous
  Country: US (occurrence: US)
  Receive Date: 20150219
  Receipt Date: 20150219
  Transmission Date: 20150721
  Serious: No
  Sender: FDA-Public Use
  Company Number: US-ABBVIE-14P-163-1228385-00

PATIENT
  Age: 59 Year
  Sex: Female

DRUGS (4)
  1. UNKNOWN BLOOD PRESSURE MEDICATIONS [Concomitant]
     Indication: BLOOD PRESSURE ABNORMAL
  2. UNKNOWN CHOLESTEROL MEDICATIONS [Concomitant]
     Indication: BLOOD CHOLESTEROL ABNORMAL
  3. HUMIRA [Suspect]
     Active Substance: ADALIMUMAB
     Indication: PSORIASIS
     Dosage: LOADING
     Dates: start: 2013, end: 20140416
  4. UNKNOWN THYROID MEDICATIONS [Concomitant]
     Indication: THYROID DISORDER

REACTIONS (1)
  - Hepatitis C virus test positive [Unknown]

NARRATIVE: CASE EVENT DATE: 20140416
